FAERS Safety Report 16473538 (Version 5)
Quarter: 2020Q1

REPORT INFORMATION
  Report Type: Spontaneous
  Country: US (occurrence: US)
  Receive Date: 20190625
  Receipt Date: 20200121
  Transmission Date: 20200409
  Serious: Yes (Other)
  Sender: FDA-Public Use
  Company Number: US-ASTRAZENECA-2019SE89990

PATIENT
  Age: 818 Month
  Sex: Female

DRUGS (1)
  1. ZOMIG [Suspect]
     Active Substance: ZOLMITRIPTAN
     Indication: MIGRAINE
     Dosage: USE 1 SPRAY IN 1 NOSTRIL ONCE AT ONSET OF MIGRAINE. MAY REPEAT ONCE AFTER 2 HOURS INTO ALTERNATE NOS
     Route: 045

REACTIONS (12)
  - Nasopharyngitis [Unknown]
  - Arthritis [Unknown]
  - Depression [Unknown]
  - Pain in extremity [Unknown]
  - Urinary tract infection [Unknown]
  - Myocardial infarction [Unknown]
  - Throat irritation [Unknown]
  - Insomnia [Unknown]
  - Migraine [Unknown]
  - Therapeutic product effect decreased [Unknown]
  - Stress [Unknown]
  - Malaise [Unknown]

NARRATIVE: CASE EVENT DATE: 201908
